FAERS Safety Report 9621167 (Version 1)
Quarter: 2013Q4

REPORT INFORMATION
  Report Type: Spontaneous
  Country: ES (occurrence: ES)
  Receive Date: 20131015
  Receipt Date: 20131015
  Transmission Date: 20140711
  Serious: Yes (Hospitalization)
  Sender: FDA-Public Use
  Company Number: ES-MYLANLABS-2013S1022193

PATIENT
  Age: 57 Year
  Sex: Male

DRUGS (4)
  1. ARIPIPRAZOLE [Suspect]
     Dosage: 15MG/DAY
     Route: 065
  2. IMIPRAMINE [Suspect]
     Dosage: 50MG WITH BREAKFAST + 25MG WITH DINNER
     Route: 065
  3. LORAZEPAM [Concomitant]
     Route: 065
  4. LORMETAZEPAM [Concomitant]
     Dosage: 2MG/DAY
     Route: 065

REACTIONS (10)
  - Neuroleptic malignant syndrome [Recovering/Resolving]
  - Hyperthermia [Recovering/Resolving]
  - Vomiting [Recovering/Resolving]
  - Resting tremor [Recovering/Resolving]
  - Stupor [Recovering/Resolving]
  - Muscle rigidity [Recovering/Resolving]
  - Tachycardia [Recovering/Resolving]
  - Blood pressure fluctuation [Recovering/Resolving]
  - Respiratory failure [Recovering/Resolving]
  - Leukocytosis [Recovering/Resolving]
